FAERS Safety Report 18400372 (Version 2)
Quarter: 2020Q4

REPORT INFORMATION
  Report Type: Spontaneous
  Country: BR (occurrence: BR)
  Receive Date: 20201019
  Receipt Date: 20201104
  Transmission Date: 20210114
  Serious: Yes (Hospitalization, Other)
  Sender: FDA-Public Use
  Company Number: BR-TAKEDA-2020TUS043270

PATIENT
  Age: 46 Year
  Sex: Male

DRUGS (4)
  1. ESOMEPRAZOLE. [Concomitant]
     Active Substance: ESOMEPRAZOLE MAGNESIUM
     Dosage: 40 MILLIGRAM, QD
  2. PREDNISONE. [Concomitant]
     Active Substance: PREDNISONE
     Dosage: 40 MILLIGRAM, QD
  3. ENTYVIO [Suspect]
     Active Substance: VEDOLIZUMAB
     Indication: PRODUCT USED FOR UNKNOWN INDICATION
     Dosage: UNK
     Route: 042
  4. MESALAZINE [Suspect]
     Active Substance: MESALAMINE
     Indication: PRODUCT USED FOR UNKNOWN INDICATION
     Dosage: 1200 MILLIGRAM, QD
     Route: 065

REACTIONS (14)
  - Crohn^s disease [Unknown]
  - Dyschezia [Not Recovered/Not Resolved]
  - Diarrhoea [Not Recovered/Not Resolved]
  - Anorectal stenosis [Unknown]
  - Rectal polyp [Unknown]
  - Pancreatitis [Unknown]
  - Lymphadenopathy [Unknown]
  - Gastrointestinal wall thickening [Unknown]
  - Anal inflammation [Unknown]
  - Large intestinal ulcer [Unknown]
  - Anal haemorrhage [Not Recovered/Not Resolved]
  - Rectal ulcer [Unknown]
  - Anal ulcer [Unknown]
  - Abdominal pain [Not Recovered/Not Resolved]
